FAERS Safety Report 25165550 (Version 1)
Quarter: 2025Q2

REPORT INFORMATION
  Report Type: Spontaneous
  Country: IT (occurrence: IT)
  Receive Date: 20250407
  Receipt Date: 20250407
  Transmission Date: 20250716
  Serious: Yes (Hospitalization)
  Sender: SANOFI AVENTIS
  Company Number: IT-SANOFI-02470355

PATIENT
  Age: 73 Year
  Sex: Male

DRUGS (2)
  1. TOUJEO [Suspect]
     Active Substance: INSULIN GLARGINE
  2. APIDRA [Suspect]
     Active Substance: INSULIN GLULISINE

REACTIONS (3)
  - Vascular occlusion [Unknown]
  - Blood glucose increased [Unknown]
  - Wrong product administered [Unknown]
